FAERS Safety Report 23370206 (Version 1)
Quarter: 2024Q1

REPORT INFORMATION
  Report Type: Spontaneous
  Country: US (occurrence: None)
  Receive Date: 20240104
  Receipt Date: 20240104
  Transmission Date: 20240410
  Serious: Yes (Other)
  Sender: FDA-Public Use
  Company Number: None

PATIENT
  Age: 61 Year
  Sex: Male
  Weight: 63 kg

DRUGS (2)
  1. HOMEOPATHICS [Suspect]
     Active Substance: ARNICA MONTANA\CAUSTICUM\COMFREY ROOT\HOMEOPATHICS\LEDUM PALUSTRE TWIG\PSEUDOGNAPHALIUM OBTUSIFOLIUM
     Indication: Nasopharyngitis
     Dosage: OTHER STRENGTH : X;?OTHER QUANTITY : 1 DROP(S);?FREQUENCY : EVERY 4 HOURS;?
     Route: 048
     Dates: start: 20240101
  2. LISINOPRIL [Concomitant]
     Active Substance: LISINOPRIL

REACTIONS (3)
  - Drug ineffective [None]
  - Product label issue [None]
  - Product formulation issue [None]

NARRATIVE: CASE EVENT DATE: 20240103
